FAERS Safety Report 25531151 (Version 3)
Quarter: 2025Q3

REPORT INFORMATION
  Report Type: Spontaneous
  Country: JP (occurrence: JP)
  Receive Date: 20250708
  Receipt Date: 20250829
  Transmission Date: 20251020
  Serious: Yes (Death, Hospitalization)
  Sender: DAIICHI
  Company Number: JP-DSJP-DS-2025-138241-JP

PATIENT
  Age: 51 Year
  Sex: Female
  Weight: 53.5 kg

DRUGS (69)
  1. ENHERTU [Suspect]
     Active Substance: FAM-TRASTUZUMAB DERUXTECAN-NXKI
     Indication: HER2 low breast cancer
     Dosage: 5.4 MG/KG, ONCE EVERY 3 WK
     Route: 041
     Dates: start: 20250124, end: 20250124
  2. ENHERTU [Suspect]
     Active Substance: FAM-TRASTUZUMAB DERUXTECAN-NXKI
     Dosage: 5.4 MG/KG, ONCE EVERY 3 WK
     Route: 041
     Dates: start: 20250214, end: 20250214
  3. ENHERTU [Suspect]
     Active Substance: FAM-TRASTUZUMAB DERUXTECAN-NXKI
     Dosage: 5.4 MG/KG, ONCE EVERY 3 WK
     Route: 041
     Dates: start: 20250411, end: 20250411
  4. LOXOPROFEN SODIUM [Suspect]
     Active Substance: LOXOPROFEN SODIUM
     Indication: Product used for unknown indication
     Dosage: 60 MG, TID, AFTER EVERY MEAL
     Route: 065
     Dates: start: 20250214
  5. ZYPREXA [Concomitant]
     Active Substance: OLANZAPINE
     Indication: Product used for unknown indication
     Dosage: 5 MG, QD, AFTER DINNER
     Route: 048
     Dates: start: 20250124, end: 20250127
  6. ZYPREXA [Concomitant]
     Active Substance: OLANZAPINE
     Dosage: 5 MG, QD, AFTER DINNER
     Route: 048
     Dates: start: 20250214, end: 20250217
  7. ZYPREXA [Concomitant]
     Active Substance: OLANZAPINE
     Dosage: 5 MG, QD, AFTER DINNER
     Route: 048
     Dates: start: 20250411, end: 20250414
  8. ZYPREXA [Concomitant]
     Active Substance: OLANZAPINE
     Dosage: 2.5 MG, QD, BEFORE SLEEP
     Route: 048
     Dates: start: 20250515
  9. OXYCODONE HYDROCHLORIDE [Concomitant]
     Active Substance: OXYCODONE HYDROCHLORIDE
     Indication: Product used for unknown indication
     Dosage: 40 MG, BID, AT 8:00 AND 20:00
     Route: 048
     Dates: start: 20250128, end: 20250210
  10. OXYCODONE HYDROCHLORIDE [Concomitant]
     Active Substance: OXYCODONE HYDROCHLORIDE
     Dosage: 40 MG, BID, AT 8:00 AND 20:00
     Route: 048
     Dates: start: 20250214, end: 20250306
  11. OXYCODONE HYDROCHLORIDE [Concomitant]
     Active Substance: OXYCODONE HYDROCHLORIDE
     Route: 048
     Dates: start: 20250307, end: 20250313
  12. OXYCODONE HYDROCHLORIDE [Concomitant]
     Active Substance: OXYCODONE HYDROCHLORIDE
     Route: 048
     Dates: start: 20250314, end: 20250318
  13. OXYCODONE HYDROCHLORIDE [Concomitant]
     Active Substance: OXYCODONE HYDROCHLORIDE
     Dosage: 80 MG, BID, AT 8:00 AND 20:00
     Route: 048
     Dates: start: 20250319, end: 20250410
  14. OXYCODONE HYDROCHLORIDE [Concomitant]
     Active Substance: OXYCODONE HYDROCHLORIDE
     Dosage: 60 MG, QD, AT 20:00
     Route: 048
     Dates: start: 20250512, end: 20250512
  15. OXYCODONE HYDROCHLORIDE [Concomitant]
     Active Substance: OXYCODONE HYDROCHLORIDE
     Route: 048
     Dates: start: 20250513
  16. DECADRON (DEXAMETHASONE SODIUM PHOSPHATE) [Concomitant]
     Active Substance: DEXAMETHASONE SODIUM PHOSPHATE
     Indication: Product used for unknown indication
     Dosage: 9.9 MG, QD
     Route: 041
     Dates: start: 20250124, end: 20250124
  17. DECADRON (DEXAMETHASONE SODIUM PHOSPHATE) [Concomitant]
     Active Substance: DEXAMETHASONE SODIUM PHOSPHATE
     Dosage: 9.9 MG, QD
     Route: 041
     Dates: start: 20250214, end: 20250214
  18. DECADRON (DEXAMETHASONE SODIUM PHOSPHATE) [Concomitant]
     Active Substance: DEXAMETHASONE SODIUM PHOSPHATE
     Dosage: 9.9 MG, QD
     Route: 041
     Dates: start: 20250411, end: 20250411
  19. FOSNETUPITANT CHLORIDE HYDROCHLORIDE [Concomitant]
     Active Substance: FOSNETUPITANT CHLORIDE HYDROCHLORIDE
     Indication: Product used for unknown indication
     Dosage: 235 MG, QD
     Route: 041
     Dates: start: 20250124, end: 20250124
  20. FOSNETUPITANT CHLORIDE HYDROCHLORIDE [Concomitant]
     Active Substance: FOSNETUPITANT CHLORIDE HYDROCHLORIDE
     Dosage: 235 MG, QD
     Route: 041
     Dates: start: 20250214, end: 20250214
  21. FOSNETUPITANT CHLORIDE HYDROCHLORIDE [Concomitant]
     Active Substance: FOSNETUPITANT CHLORIDE HYDROCHLORIDE
     Dosage: 235 MG, QD
     Route: 041
     Dates: start: 20250411, end: 20250411
  22. ALOXI [Concomitant]
     Active Substance: PALONOSETRON HYDROCHLORIDE
     Indication: Product used for unknown indication
     Dosage: 0.75 MG, QD
     Route: 041
     Dates: start: 20250124, end: 20250124
  23. ALOXI [Concomitant]
     Active Substance: PALONOSETRON HYDROCHLORIDE
     Dosage: 0.75 MG, QD
     Route: 041
     Dates: start: 20250214, end: 20250214
  24. ALOXI [Concomitant]
     Active Substance: PALONOSETRON HYDROCHLORIDE
     Dosage: 0.75 MG, QD
     Route: 041
     Dates: start: 20250411, end: 20250411
  25. SODIUM CHLORIDE [Concomitant]
     Active Substance: SODIUM CHLORIDE
     Indication: Product used for unknown indication
     Dosage: 100 ML, QD
     Route: 041
     Dates: start: 20250124, end: 20250124
  26. SODIUM CHLORIDE [Concomitant]
     Active Substance: SODIUM CHLORIDE
     Dosage: 100 ML, QD
     Route: 041
     Dates: start: 20250214, end: 20250214
  27. SODIUM CHLORIDE [Concomitant]
     Active Substance: SODIUM CHLORIDE
     Dosage: 100 ML, QD
     Route: 041
     Dates: start: 20250411, end: 20250411
  28. GLUCOSE OTSUKA [Concomitant]
     Indication: Catheter management
     Dosage: 100 ML, QD
     Route: 041
     Dates: start: 20250124, end: 20250124
  29. GLUCOSE OTSUKA [Concomitant]
     Dosage: 100 ML, QD
     Route: 041
     Dates: start: 20250214, end: 20250214
  30. GLUCOSE OTSUKA [Concomitant]
     Dosage: 100 ML, QD
     Route: 041
     Dates: start: 20250411, end: 20250411
  31. DEXTROSE [Concomitant]
     Active Substance: DEXTROSE MONOHYDRATE
     Indication: Product used for unknown indication
     Dosage: 100 ML, QD
     Route: 041
     Dates: start: 20250124, end: 20250124
  32. DEXTROSE [Concomitant]
     Active Substance: DEXTROSE MONOHYDRATE
     Dosage: 100 ML, QD
     Route: 041
     Dates: start: 20250214, end: 20250214
  33. DEXTROSE [Concomitant]
     Active Substance: DEXTROSE MONOHYDRATE
     Dosage: 100 ML, QD
     Route: 041
     Dates: start: 20250411, end: 20250411
  34. WATER FOR INJECTION [Concomitant]
     Active Substance: WATER
     Indication: Product used for unknown indication
     Dosage: 20 ML, QD
     Route: 041
     Dates: start: 20250124, end: 20250124
  35. WATER FOR INJECTION [Concomitant]
     Active Substance: WATER
     Dosage: 20 ML, QD
     Route: 041
     Dates: start: 20250214, end: 20250214
  36. WATER FOR INJECTION [Concomitant]
     Active Substance: WATER
     Dosage: 20 ML, QD
     Route: 041
     Dates: start: 20250411, end: 20250411
  37. OXYCODONE HYDROCHLORIDE [Concomitant]
     Active Substance: OXYCODONE HYDROCHLORIDE
     Indication: Pain
     Route: 065
     Dates: start: 20250128
  38. OXYCODONE HYDROCHLORIDE [Concomitant]
     Active Substance: OXYCODONE HYDROCHLORIDE
     Route: 065
     Dates: start: 20250314
  39. OXYCODONE HYDROCHLORIDE [Concomitant]
     Active Substance: OXYCODONE HYDROCHLORIDE
     Route: 065
     Dates: start: 20250319
  40. OXYCODONE HYDROCHLORIDE [Concomitant]
     Active Substance: OXYCODONE HYDROCHLORIDE
     Route: 065
     Dates: start: 20250513
  41. OXYCODONE HYDROCHLORIDE [Concomitant]
     Active Substance: OXYCODONE HYDROCHLORIDE
     Route: 065
     Dates: start: 20250515
  42. OXYCODONE HYDROCHLORIDE [Concomitant]
     Active Substance: OXYCODONE HYDROCHLORIDE
     Route: 065
     Dates: start: 20250519
  43. MAGNESIUM OXIDE YOSHIDA [Concomitant]
     Indication: Product used for unknown indication
     Dosage: 660 MG, BID
     Route: 065
     Dates: start: 20250127, end: 20250127
  44. MAGNESIUM OXIDE YOSHIDA [Concomitant]
     Dosage: 330 MG, TID
     Route: 065
     Dates: start: 20250304, end: 20250309
  45. MAGNESIUM OXIDE YOSHIDA [Concomitant]
     Dosage: 660 MG, TID
     Route: 065
     Dates: start: 20250310, end: 20250410
  46. MAGNESIUM OXIDE YOSHIDA [Concomitant]
     Dosage: 330 MG, TID
     Route: 065
     Dates: start: 20250515
  47. REBAMIPIDE NS [Concomitant]
     Indication: Product used for unknown indication
     Dosage: 100 MG, TID, AFTER EVERY MEAL
     Route: 065
     Dates: start: 20250214
  48. LOXOPROFEN SODIUM [Concomitant]
     Active Substance: LOXOPROFEN SODIUM
     Indication: Product used for unknown indication
     Route: 061
     Dates: start: 20250214
  49. METOCLOPRAMIDE [Concomitant]
     Active Substance: METOCLOPRAMIDE
     Indication: Product used for unknown indication
     Dosage: 5 MG, TID, BEFORE EVERY MEAL
     Route: 065
     Dates: start: 20250214, end: 20250220
  50. BROTIZOLAM OD SAWAI [Concomitant]
     Indication: Insomnia
     Route: 065
     Dates: start: 20250214
  51. BROTIZOLAM OD SAWAI [Concomitant]
     Dosage: 0.25 MG, QD
     Route: 065
     Dates: start: 20250515
  52. DENOSUMAB [Concomitant]
     Active Substance: DENOSUMAB
     Indication: Product used for unknown indication
     Route: 058
     Dates: start: 20250214, end: 20250214
  53. DENOSUMAB [Concomitant]
     Active Substance: DENOSUMAB
     Route: 058
     Dates: start: 20250411, end: 20250411
  54. CYMBALTA [Concomitant]
     Active Substance: DULOXETINE HYDROCHLORIDE
     Indication: Product used for unknown indication
     Dosage: 20 MG, QD, AFTER DINNER
     Route: 065
     Dates: start: 20250311
  55. SENNOSIDES A AND B [Concomitant]
     Active Substance: SENNOSIDES A AND B
     Indication: Constipation
     Route: 065
     Dates: start: 20250306
  56. GLYCOSAMINOGLYCANS [Concomitant]
     Active Substance: GLYCOSAMINOGLYCANS
     Indication: Product used for unknown indication
     Route: 065
     Dates: start: 20250307
  57. MOSAPRIDE CITRATE [Concomitant]
     Active Substance: MOSAPRIDE CITRATE
     Indication: Product used for unknown indication
     Dosage: 5 MG, TID, AFTER EVERY MEAL
     Route: 065
     Dates: start: 20250306, end: 20250319
  58. LANSOPRAZOLE [Concomitant]
     Active Substance: LANSOPRAZOLE
     Indication: Product used for unknown indication
     Dosage: 30 MG, QD, AFTER DINNER
     Route: 065
     Dates: start: 20250314, end: 20250318
  59. LANSOPRAZOLE [Concomitant]
     Active Substance: LANSOPRAZOLE
     Route: 065
     Dates: start: 20250319, end: 20250417
  60. FENTANYL [Concomitant]
     Active Substance: FENTANYL
     Indication: Product used for unknown indication
     Dosage: 6 MG, QD
     Dates: start: 20250412, end: 20250414
  61. FENTANYL [Concomitant]
     Active Substance: FENTANYL
     Dosage: 8 MG, QD
     Dates: start: 20250415, end: 20250417
  62. FENTANYL [Concomitant]
     Active Substance: FENTANYL
     Dosage: 8 MG, QD
     Dates: start: 20250418, end: 20250512
  63. FENTANYL [Concomitant]
     Active Substance: FENTANYL
     Dosage: 8 MG, QD
     Dates: start: 20250513
  64. MORPHINE HYDROCHLORIDE [Concomitant]
     Active Substance: MORPHINE HYDROCHLORIDE
     Indication: Pain
     Route: 048
     Dates: start: 20250411
  65. MORPHINE HYDROCHLORIDE [Concomitant]
     Active Substance: MORPHINE HYDROCHLORIDE
     Route: 048
     Dates: start: 20250418
  66. MOSAPRIDE CITRATE [Concomitant]
     Active Substance: MOSAPRIDE CITRATE
     Indication: Product used for unknown indication
     Dosage: 5 MG, TID, AFTER EVERY MEAL
     Route: 065
     Dates: start: 20250513
  67. SULFAMETHOXAZOLE\TRIMETHOPRIM [Concomitant]
     Active Substance: SULFAMETHOXAZOLE\TRIMETHOPRIM
     Indication: Product used for unknown indication
     Dosage: 1 DOSAGE FORM, QD, AFTER BREAKFAST
     Route: 065
     Dates: start: 20250515
  68. ACETAMINOPHEN [Concomitant]
     Active Substance: ACETAMINOPHEN
     Indication: Product used for unknown indication
     Dosage: 500 MG, TID, AFTER EVERY MEAL
     Route: 065
     Dates: start: 20250515
  69. VONOPRAZAN FUMARATE [Concomitant]
     Active Substance: VONOPRAZAN FUMARATE
     Indication: Product used for unknown indication
     Dosage: 10 MG, QD, AFTER BREAKFAST
     Route: 065
     Dates: start: 20250517

REACTIONS (2)
  - Interstitial lung disease [Fatal]
  - Disease progression [Fatal]

NARRATIVE: CASE EVENT DATE: 20250101
